FAERS Safety Report 14420117 (Version 1)
Quarter: 2018Q1

REPORT INFORMATION
  Report Type: Spontaneous
  Country: US (occurrence: US)
  Receive Date: 20180122
  Receipt Date: 20180122
  Transmission Date: 20180509
  Serious: No
  Sender: FDA-Public Use
  Company Number: US-ROCHE-1904750

PATIENT
  Sex: Male
  Weight: 86.26 kg

DRUGS (2)
  1. RITUXAN [Suspect]
     Active Substance: RITUXIMAB
     Indication: UVEITIS
  2. RITUXAN [Suspect]
     Active Substance: RITUXIMAB
     Indication: ANKYLOSING SPONDYLITIS
     Dosage: ONGOING: NO
     Route: 041
     Dates: start: 20161114

REACTIONS (2)
  - Therapeutic response decreased [Unknown]
  - No adverse event [Unknown]
